FAERS Safety Report 13552757 (Version 3)
Quarter: 2017Q3

REPORT INFORMATION
  Report Type: Report from Study
  Country: JP (occurrence: JP)
  Receive Date: 20170517
  Receipt Date: 20170809
  Transmission Date: 20171127
  Serious: Yes (Death)
  Sender: FDA-Public Use
  Company Number: JP-ASTRAZENECA-2017SE32589

PATIENT
  Age: 68 Year
  Sex: Male

DRUGS (3)
  1. ACETAMINOPHEN. [Concomitant]
     Active Substance: ACETAMINOPHEN
     Indication: PYREXIA
     Route: 065
     Dates: start: 20170324, end: 20170327
  2. CAMOSTAT [Concomitant]
     Active Substance: CAMOSTAT
     Route: 065
     Dates: start: 20160818, end: 20170406
  3. MEDI4736 [Suspect]
     Active Substance: DURVALUMAB
     Indication: NON-SMALL CELL LUNG CANCER
     Route: 042
     Dates: start: 20170310

REACTIONS (1)
  - Polymyositis [Fatal]

NARRATIVE: CASE EVENT DATE: 20170327
